FAERS Safety Report 4776683-3 (Version None)
Quarter: 2005Q3

REPORT INFORMATION
  Report Type: 
  Country: None (occurrence: None)
  Receive Date: 20050923
  Receipt Date: 20050915
  Transmission Date: 20060218
  Serious: Yes (Hospitalization)
  Sender: FDA-Public Use
  Company Number: CZ-JNJFOC-20050903402

PATIENT
  Sex: Female

DRUGS (6)
  1. REMICADE [Suspect]
     Indication: RHEUMATOID ARTHRITIS
     Route: 042
  2. METHOTREXATE [Concomitant]
     Route: 065
  3. PREDNISON [Concomitant]
     Route: 065
  4. ACIDUM FOLICUM [Concomitant]
     Route: 065
  5. SORBIFER DURULES [Concomitant]
     Route: 065
  6. DICLOFENAC DUO [Concomitant]
     Route: 065

REACTIONS (1)
  - SYNOVECTOMY [None]
